FAERS Safety Report 4785891-7 (Version None)
Quarter: 2005Q3

REPORT INFORMATION
  Report Type: 
  Country: None (occurrence: None)
  Receive Date: 20050929
  Receipt Date: 20050624
  Transmission Date: 20060218
  Serious: Yes (Other)
  Sender: FDA-Public Use
  Company Number: 8233

PATIENT
  Age: 63 Year
  Sex: Female

DRUGS (4)
  1. SEPTOCAINE [Suspect]
     Indication: LOCAL ANAESTHESIA
     Dosage: 2 CARPULES INJECTED
  2. ULTRADENT BUTTER RUM [Suspect]
     Indication: LOCAL ANAESTHESIA
     Dosage: TOPICAL
     Route: 061
  3. NEURONTIN [Concomitant]
  4. NORTRYPTALINE [Concomitant]

REACTIONS (2)
  - HYPOAESTHESIA [None]
  - TONGUE DISORDER [None]
